FAERS Safety Report 8920281 (Version 1)
Quarter: 2012Q4

REPORT INFORMATION
  Report Type: 
  Country: BR (occurrence: BR)
  Receive Date: 20121122
  Receipt Date: 20121122
  Transmission Date: 20130627
  Serious: Yes (Other)
  Sender: FDA-Public Use
  Company Number: BR-JNJFOC-20121109119

PATIENT
  Age: 73 Year
  Sex: Female
  Weight: 75 kg

DRUGS (10)
  1. TYLEX [Suspect]
     Indication: FIBROMYALGIA
     Route: 048
     Dates: start: 20121112
  2. TYLEX [Suspect]
     Indication: FIBROMYALGIA
     Route: 048
     Dates: start: 20121111
  3. TYLEX [Suspect]
     Indication: FIBROMYALGIA
     Route: 048
     Dates: start: 20121110
  4. TYLEX [Suspect]
     Indication: FIBROMYALGIA
     Route: 048
     Dates: start: 2009
  5. TYLEX [Suspect]
     Indication: OSTEOARTHRITIS
     Route: 048
     Dates: start: 2009
  6. TYLEX [Suspect]
     Indication: OSTEOARTHRITIS
     Route: 048
     Dates: start: 20121112
  7. TYLEX [Suspect]
     Indication: OSTEOARTHRITIS
     Route: 048
     Dates: start: 20121110
  8. TYLEX [Suspect]
     Indication: OSTEOARTHRITIS
     Route: 048
     Dates: start: 20121111
  9. MICARDIS HCT [Concomitant]
     Indication: BLOOD PRESSURE
     Route: 065
     Dates: start: 2007
  10. LABETALOL [Concomitant]
     Indication: BLOOD PRESSURE
     Route: 065
     Dates: start: 2007

REACTIONS (2)
  - Somnolence [Recovered/Resolved]
  - Dizziness [Recovered/Resolved]
